FAERS Safety Report 25969052 (Version 1)
Quarter: 2025Q4

REPORT INFORMATION
  Report Type: Spontaneous
  Country: EU (occurrence: EU)
  Receive Date: 20251028
  Receipt Date: 20251028
  Transmission Date: 20260118
  Serious: Yes (Hospitalization, Congenital Anomaly, Other)
  Sender: JOHNSON AND JOHNSON
  Company Number: EU-ACTELION-A-CH2016-131573

PATIENT
  Sex: Female
  Weight: 1.345 kg

DRUGS (9)
  1. OPSUMIT [Suspect]
     Active Substance: MACITENTAN
     Indication: Exposure during pregnancy
     Dosage: 10 MG, QD
     Route: 064
     Dates: end: 20150323
  2. VENTAVIS [Suspect]
     Active Substance: ILOPROST
     Indication: Exposure during pregnancy
     Dosage: UNK
     Route: 064
     Dates: end: 201505
  3. SILDENAFIL [Suspect]
     Active Substance: SILDENAFIL
     Indication: Exposure during pregnancy
     Dosage: 20 MG, TID
     Route: 064
  4. AZATHIOPRINE [Suspect]
     Active Substance: AZATHIOPRINE
     Indication: Exposure during pregnancy
     Dosage: 50 UNK, QD 1 IN 1 DAY
     Route: 064
  5. TINZAPARIN [Suspect]
     Active Substance: TINZAPARIN
     Indication: Exposure during pregnancy
     Route: 064
  6. PREDNISOLONE [Suspect]
     Active Substance: PREDNISOLONE
     Indication: Exposure during pregnancy
     Route: 064
  7. HYDROXYCHLOROQUINE [Suspect]
     Active Substance: HYDROXYCHLOROQUINE
     Indication: Exposure during pregnancy
     Route: 064
  8. TREPROSTINIL [Suspect]
     Active Substance: TREPROSTINIL
     Indication: Exposure during pregnancy
     Route: 064
  9. APIXABAN [Suspect]
     Active Substance: APIXABAN
     Indication: Exposure during pregnancy
     Route: 064

REACTIONS (9)
  - Premature baby [Unknown]
  - Chondrodysplasia punctata [Unknown]
  - Foetal growth restriction [Unknown]
  - Congenital musculoskeletal disorder [Unknown]
  - Neonatal respiratory distress syndrome [Recovered/Resolved]
  - Posture abnormal [Unknown]
  - Bradycardia [Recovered/Resolved]
  - Cyanosis [Recovered/Resolved]
  - Hypotonia [Recovered/Resolved]
